FAERS Safety Report 8847774 (Version 2)
Quarter: 2012Q4

REPORT INFORMATION
  Report Type: Report from Study
  Country: ES (occurrence: ES)
  Receive Date: 20121018
  Receipt Date: 20121107
  Transmission Date: 20130627
  Serious: Yes (Hospitalization, Other)
  Sender: FDA-Public Use
  Company Number: ES-PFIZER INC-2012256319

PATIENT
  Age: 57 Year
  Sex: Female
  Weight: 93 kg

DRUGS (6)
  1. GENOTROPIN [Suspect]
     Indication: GROWTH HORMONE DEFICIENCY
     Dosage: 0.2 mg, 7/wk
     Route: 058
     Dates: start: 20060503
  2. LOVASTATIN [Concomitant]
     Indication: DYSLIPIDEMIA
     Dosage: UNK
     Dates: start: 19950701
  3. HYDROCHLOROTHIAZID [Concomitant]
     Indication: ESSENTIAL HYPERTENSION
     Dosage: UNK
     Dates: start: 19990701
  4. TIBOLONE [Concomitant]
     Indication: DIFFICULTY BREATHING
     Dosage: UNK
     Dates: start: 19990701
  5. LORAZEPAM [Concomitant]
     Indication: ANXIETY STATE, UNSPECIFIED
     Dosage: UNK
     Dates: start: 20000701
  6. SERTRALINE [Concomitant]
     Indication: ANXIETY ATTACK
     Dosage: UNK
     Dates: start: 20010701

REACTIONS (2)
  - Anal fissure [Recovered/Resolved]
  - Renal colic [Recovered/Resolved]
